FAERS Safety Report 21667960 (Version 2)
Quarter: 2024Q2

REPORT INFORMATION
  Report Type: Other
  Country: CA (occurrence: None)
  Receive Date: 20221201
  Receipt Date: 20240418
  Transmission Date: 20240716
  Serious: Yes (Other)
  Sender: FDA-Public Use
  Company Number: CA-ROCHE-2684049

PATIENT
  Sex: Male
  Weight: 86 kg

DRUGS (8)
  1. ACTEMRA [Suspect]
     Active Substance: TOCILIZUMAB
     Indication: Rheumatoid arthritis
     Dosage: B4021 (2024-MAR-31)
     Route: 042
     Dates: end: 20220323
  2. ACTEMRA [Suspect]
     Active Substance: TOCILIZUMAB
     Route: 042
     Dates: end: 20221102
  3. NAPROXEN [Suspect]
     Active Substance: NAPROXEN
     Indication: Product used for unknown indication
     Route: 065
     Dates: end: 202010
  4. ARAVA [Concomitant]
     Active Substance: LEFLUNOMIDE
     Indication: Product used for unknown indication
  5. CELEBREX [Concomitant]
     Active Substance: CELECOXIB
     Dates: start: 202012
  6. DEXILANT [Concomitant]
     Active Substance: DEXLANSOPRAZOLE
     Dates: start: 202012
  7. CORTISONE [Concomitant]
     Active Substance: CORTISONE
  8. PREDNISONE [Concomitant]
     Active Substance: PREDNISONE
     Dates: end: 20210331

REACTIONS (32)
  - Aphthous ulcer [Unknown]
  - Abdominal pain [Unknown]
  - Micturition urgency [Unknown]
  - Urine odour abnormal [Unknown]
  - Arthralgia [Not Recovered/Not Resolved]
  - Diarrhoea [Unknown]
  - Fatigue [Unknown]
  - Abdominal pain [Unknown]
  - Stomatitis [Not Recovered/Not Resolved]
  - Skin ulcer [Not Recovered/Not Resolved]
  - Headache [Unknown]
  - Mood swings [Unknown]
  - Folliculitis [Unknown]
  - Nausea [Unknown]
  - Faeces soft [Not Recovered/Not Resolved]
  - Faeces discoloured [Not Recovered/Not Resolved]
  - Weight increased [Unknown]
  - Blood pressure increased [Unknown]
  - Abdominal distension [Unknown]
  - Insomnia [Unknown]
  - Irritability [Unknown]
  - Joint ankylosis [Unknown]
  - Weight decreased [Unknown]
  - Oxygen saturation decreased [Unknown]
  - Blood pressure diastolic increased [Unknown]
  - Arthralgia [Not Recovered/Not Resolved]
  - Arthralgia [Not Recovered/Not Resolved]
  - Intervertebral disc displacement [Unknown]
  - Arthralgia [Unknown]
  - Arthralgia [Unknown]
  - Pain [Unknown]
  - Rheumatoid arthritis [Unknown]

NARRATIVE: CASE EVENT DATE: 20200101
